FAERS Safety Report 5165585-9 (Version None)
Quarter: 2006Q4

REPORT INFORMATION
  Report Type: 
  Country: None (occurrence: None)
  Receive Date: 20061206
  Receipt Date: 20061128
  Transmission Date: 20070319
  Serious: Yes (Hospitalization)
  Sender: FDA-Public Use
  Company Number: JP-JPN-A200605095

PATIENT
  Sex: Male

DRUGS (8)
  1. VALTREX [Suspect]
     Indication: HERPES ZOSTER
     Dosage: 6TAB PER DAY
     Route: 048
  2. THEOPHYLLINE [Suspect]
     Indication: CARDIAC FAILURE
     Dosage: 400MG PER DAY
     Route: 048
  3. DIGOXIN [Concomitant]
     Indication: CARDIAC FAILURE
     Dosage: .125MG PER DAY
     Route: 048
  4. IMIDAPRIL HYDROCHLORIDE [Concomitant]
     Indication: HYPERTENSION
     Dosage: 10MG PER DAY
     Route: 048
  5. DILTIAZEM HYDROCHLORIDE [Concomitant]
     Indication: ANGINA PECTORIS
     Dosage: 200MG PER DAY
     Route: 048
  6. ISOSORBIDE DINITRATE [Concomitant]
     Indication: ANGINA PECTORIS
     Dosage: 20MG PER DAY
     Route: 048
  7. ALLOPURINOL [Concomitant]
     Dosage: 200MG PER DAY
     Route: 048
  8. TICLOPIDINE HYDROCHLORIDE [Concomitant]
     Indication: THROMBOSIS PROPHYLAXIS
     Dosage: 200MG PER DAY
     Route: 048

REACTIONS (3)
  - ANOREXIA [None]
  - DRUG INTERACTION [None]
  - VOMITING [None]
